FAERS Safety Report 4343041-5 (Version None)
Quarter: 2004Q2

REPORT INFORMATION
  Report Type: 
  Country: None (occurrence: None)
  Receive Date: 20040421
  Receipt Date: 20040414
  Transmission Date: 20050107
  Serious: Yes (Other)
  Sender: FDA-Public Use
  Company Number: BR-ROCHE-364572

PATIENT
  Age: 18 Year
  Sex: Female

DRUGS (4)
  1. ROACUTAN [Suspect]
     Indication: ACNE
     Route: 048
     Dates: start: 19990615, end: 19990615
  2. ROACUTAN [Suspect]
     Route: 048
     Dates: start: 20010615, end: 20020615
  3. ROACUTAN [Suspect]
     Route: 048
     Dates: start: 20030915, end: 20031215
  4. FLUOXETINE [Concomitant]
     Indication: DEPRESSION
     Route: 048
     Dates: start: 20031215

REACTIONS (6)
  - ACNE [None]
  - DEPRESSION [None]
  - DRUG EFFECT DECREASED [None]
  - DRUG INEFFECTIVE [None]
  - LIP DRY [None]
  - SUICIDAL IDEATION [None]
